FAERS Safety Report 4469723-2 (Version None)
Quarter: 2004Q4

REPORT INFORMATION
  Report Type: 
  Country: None (occurrence: None)
  Receive Date: 20041008
  Receipt Date: 20040930
  Transmission Date: 20050328
  Serious: Yes (Death)
  Sender: FDA-Public Use
  Company Number: US-JNJFOC-20040910217

PATIENT
  Sex: Male
  Weight: 77.7 kg

DRUGS (13)
  1. NATRECOR [Suspect]
     Indication: DRUG USE FOR UNKNOWN INDICATION
     Route: 042
  2. ASPIRIN [Concomitant]
     Dosage: AM
  3. PRILOSEC [Concomitant]
     Dosage: AM
  4. GLUCOTROL [Concomitant]
  5. IMDUR [Concomitant]
     Dosage: AM
  6. ADVAIR DISKUS 100/50 [Concomitant]
  7. ADVAIR DISKUS 100/50 [Concomitant]
     Dosage: 1 PUFF BID
  8. COUMADIN [Concomitant]
     Dosage: PM
  9. ALTACE [Concomitant]
  10. SPIROLACTONE [Concomitant]
     Dosage: BEDTIME/AM
  11. DEMADEX [Concomitant]
     Dosage: 4 IN AM AND 1 IN PM
  12. TOPROL-XL [Concomitant]
     Dosage: 1/2 TAB QPM
  13. COREG [Concomitant]
     Dosage: QPM  AND ^BID^

REACTIONS (10)
  - BLOOD CREATININE INCREASED [None]
  - BLOOD UREA INCREASED [None]
  - CONTUSION [None]
  - DIARRHOEA [None]
  - DYSPNOEA EXERTIONAL [None]
  - HERPES ZOSTER [None]
  - HYPOAESTHESIA [None]
  - NEUROPATHY [None]
  - POLYARTHRITIS [None]
  - RASH [None]
